FAERS Safety Report 20949102 (Version 2)
Quarter: 2022Q2

REPORT INFORMATION
  Report Type: Report from Study
  Country: US (occurrence: US)
  Receive Date: 20220613
  Receipt Date: 20220620
  Transmission Date: 20220720
  Serious: Yes (Hospitalization)
  Sender: FDA-Public Use
  Company Number: US-JNJFOC-20220605682

PATIENT
  Age: 62 Year
  Sex: Male
  Weight: 84 kg

DRUGS (2)
  1. DARATUMUMAB [Suspect]
     Active Substance: DARATUMUMAB
     Indication: Plasma cell myeloma
     Dosage: FREQUENCY WAS WEEKLY FOR WEEKS 1-8, EVERY 2 WEEKS FOR WEEKS 9-24, EVERY MONTH FOR WEEKS 25 UNTIL PRO
     Route: 058
     Dates: start: 20201214
  2. POMALIDOMIDE [Suspect]
     Active Substance: POMALIDOMIDE
     Indication: Plasma cell myeloma
     Dosage: DAILY FROM DAY 1-21, DURING 28-DAY CYCLE
     Route: 048
     Dates: start: 20210505, end: 20220531

REACTIONS (1)
  - Gastroenteritis astroviral [Recovered/Resolved]

NARRATIVE: CASE EVENT DATE: 20220529
